FAERS Safety Report 15277846 (Version 3)
Quarter: 2019Q1

REPORT INFORMATION
  Report Type: Spontaneous
  Country: US (occurrence: US)
  Receive Date: 20180814
  Receipt Date: 20190329
  Transmission Date: 20190417
  Serious: No
  Sender: FDA-Public Use
  Company Number: US-PFIZER INC-2018325476

PATIENT
  Age: 54 Year
  Sex: Female

DRUGS (3)
  1. LETROZOLE. [Concomitant]
     Active Substance: LETROZOLE
     Dosage: UNK
  2. IBRANCE [Suspect]
     Active Substance: PALBOCICLIB
     Indication: BREAST CANCER METASTATIC
     Dosage: 125 MG, CYCLIC (DAILY 21 CONSECUTIVE DAYS FOLLOWED BY 7 DAYS OFF)
     Route: 048
     Dates: start: 20180803, end: 20180823
  3. IBRANCE [Suspect]
     Active Substance: PALBOCICLIB
     Dosage: 125 MG, CYCLIC(EVERY DAY FOR 21 CONSECUTIVE DAYS, FOLLOWED BY 7 DAYS OFF)
     Route: 048
     Dates: start: 201808

REACTIONS (3)
  - Pruritus [Recovered/Resolved]
  - Dizziness [Recovered/Resolved]
  - Alopecia [Unknown]

NARRATIVE: CASE EVENT DATE: 201808
